FAERS Safety Report 9757500 (Version 2)
Quarter: 2014Q1

REPORT INFORMATION
  Report Type: Spontaneous
  Country: IT (occurrence: IT)
  Receive Date: 20131215
  Receipt Date: 20140107
  Transmission Date: 20141002
  Serious: Yes (Other)
  Sender: FDA-Public Use
  Company Number: IT-009507513-1312ITA005319

PATIENT
  Age: 68 Year
  Sex: Male

DRUGS (1)
  1. ALTOSONE [Suspect]
     Dosage: 2 GTT, TOTAL
     Route: 047
     Dates: start: 20121027, end: 20121027

REACTIONS (2)
  - Corneal abrasion [Recovering/Resolving]
  - Conjunctival hyperaemia [Recovering/Resolving]
